FAERS Safety Report 14185760 (Version 1)
Quarter: 2017Q4

REPORT INFORMATION
  Report Type: Spontaneous
  Country: CA (occurrence: CA)
  Receive Date: 20171114
  Receipt Date: 20171114
  Transmission Date: 20180321
  Serious: Yes (Other)
  Sender: FDA-Public Use
  Company Number: CA-GLAXOSMITHKLINE-A1090263A

PATIENT
  Age: 42 Year
  Sex: Female
  Weight: 136 kg

DRUGS (5)
  1. BENLYSTA [Suspect]
     Active Substance: BELIMUMAB
     Dosage: 1110 MG, Q4 WEEKS
     Route: 042
  2. BENLYSTA [Suspect]
     Active Substance: BELIMUMAB
     Dosage: 1270 MG, 0, 2, 4 WEEKS THEN EVERY 4 WEEKS
     Route: 042
  3. CORTISONE [Concomitant]
     Active Substance: CORTISONE\HYDROCORTISONE
     Indication: PRODUCT USED FOR UNKNOWN INDICATION
     Dosage: UNK
     Route: 042
  4. BENLYSTA [Suspect]
     Active Substance: BELIMUMAB
     Indication: SYSTEMIC LUPUS ERYTHEMATOSUS
     Dosage: 1270 MG, 0, 2, 4 WEEKS THEN EVERY 4 WEEKS
     Route: 042
     Dates: start: 20120924
  5. BENLYSTA [Suspect]
     Active Substance: BELIMUMAB
     Dosage: 1300 MG, Q4 WEEKS
     Route: 042

REACTIONS (16)
  - Oral pain [Recovered/Resolved]
  - Polyarthritis [Unknown]
  - Weight decreased [Unknown]
  - Lupus nephritis [Unknown]
  - Pain [Unknown]
  - Ill-defined disorder [Unknown]
  - Drug ineffective [Not Recovered/Not Resolved]
  - Joint stiffness [Not Recovered/Not Resolved]
  - Raynaud^s phenomenon [Unknown]
  - Swelling [Recovered/Resolved]
  - Groin pain [Unknown]
  - Palatal disorder [Unknown]
  - Musculoskeletal pain [Unknown]
  - Skin lesion [Recovered/Resolved]
  - Inflammation [Recovered/Resolved]
  - Systemic lupus erythematosus rash [Unknown]

NARRATIVE: CASE EVENT DATE: 20150112
